FAERS Safety Report 4521053-6 (Version None)
Quarter: 2004Q4

REPORT INFORMATION
  Report Type: 
  Country: None (occurrence: None)
  Receive Date: 20041203
  Receipt Date: 20041123
  Transmission Date: 20050328
  Serious: Yes (Hospitalization)
  Sender: FDA-Public Use
  Company Number: HQWYE676724NOV04

PATIENT
  Age: 33 Year
  Sex: Female

DRUGS (4)
  1. VENLAFAXINE HCL [Suspect]
     Indication: ANXIETY
     Dosage: 75 MG 1X PER 1 DAY
     Route: 048
     Dates: start: 20041031
  2. VENLAFAXINE HCL [Suspect]
     Indication: DEPRESSION
     Dosage: 75 MG 1X PER 1 DAY
     Route: 048
     Dates: start: 20041031
  3. GERODORM (CINOLAZEPAM) [Concomitant]
  4. XANAX [Concomitant]

REACTIONS (2)
  - ANGINA PECTORIS [None]
  - MITRAL VALVE PROLAPSE [None]
